FAERS Safety Report 23278541 (Version 1)
Quarter: 2023Q4

REPORT INFORMATION
  Report Type: Spontaneous
  Country: US (occurrence: None)
  Receive Date: 20231208
  Receipt Date: 20231208
  Transmission Date: 20240110
  Serious: No
  Sender: FDA-Public Use
  Company Number: None

PATIENT
  Age: 57 Year
  Sex: Female
  Weight: 117.93 kg

DRUGS (1)
  1. OTEZLA [Suspect]
     Active Substance: APREMILAST
     Indication: Psoriasis
     Dosage: ?TAKE 1 TABLET BY MOUTH TWICE  DAILY AS DIRECTED.
     Dates: start: 202306

REACTIONS (2)
  - Surgery [None]
  - Therapy interrupted [None]
